FAERS Safety Report 7740601-6 (Version None)
Quarter: 2011Q3

REPORT INFORMATION
  Report Type: 
  Country: None (occurrence: None)
  Receive Date: 20110909
  Receipt Date: 20110829
  Transmission Date: 20111222
  Serious: Yes (Hospitalization)
  Sender: FDA-Public Use
  Company Number: US-ALLERGAN-1111512US

PATIENT
  Age: 81 Year
  Sex: Female

DRUGS (9)
  1. BOTOX COSMETIC [Suspect]
     Indication: SKIN WRINKLING
     Dosage: UNK
     Route: 030
     Dates: start: 20110802, end: 20110802
  2. BOTOX COSMETIC [Suspect]
     Dosage: UNK
     Route: 030
     Dates: start: 20110701, end: 20110701
  3. COUMADIN [Concomitant]
  4. HYDROCHLOROTHIAZIDE [Concomitant]
  5. POTASSIUM [Concomitant]
  6. SOLASTOL [Concomitant]
     Indication: HEART RATE IRREGULAR
  7. COREG [Concomitant]
  8. LEVOTHYROXINE SODIUM [Concomitant]
  9. LOVASTATIN [Concomitant]

REACTIONS (5)
  - HEART RATE IRREGULAR [None]
  - INJECTION SITE MASS [None]
  - INJECTION SITE DISCOLOURATION [None]
  - SWELLING FACE [None]
  - EYELID OEDEMA [None]
